FAERS Safety Report 7042166-3 (Version None)
Quarter: 2010Q4

REPORT INFORMATION
  Report Type: 
  Country: None (occurrence: None)
  Receive Date: 20101013
  Receipt Date: 20100412
  Transmission Date: 20110411
  Serious: No
  Sender: FDA-Public Use
  Company Number: US-ASTRAZENECA-2010SE16007

PATIENT
  Age: 60 Year
  Sex: Female
  Weight: 78 kg

DRUGS (4)
  1. SYMBICORT [Suspect]
     Indication: ASTHMA
     Dosage: 2 PUFFS BID
     Route: 055
     Dates: start: 20100301
  2. SYMBICORT [Suspect]
     Indication: CHRONIC OBSTRUCTIVE PULMONARY DISEASE
     Dosage: 2 PUFFS BID
     Route: 055
     Dates: start: 20100301
  3. SYMBICORT [Suspect]
     Dosage: 2 PUFFS QD
     Route: 055
  4. SYMBICORT [Suspect]
     Dosage: 2 PUFFS QD
     Route: 055

REACTIONS (2)
  - DYSPEPSIA [None]
  - INCORRECT DOSE ADMINISTERED [None]
